FAERS Safety Report 10243740 (Version 1)
Quarter: 2014Q2

REPORT INFORMATION
  Report Type: Spontaneous
  Country: FR (occurrence: FR)
  Receive Date: 20140618
  Receipt Date: 20140618
  Transmission Date: 20141212
  Serious: Yes (Other)
  Sender: FDA-Public Use
  Company Number: FR-GE HEALTHCARE MEDICAL DIAGNOSTICS-OMPQ-PR-1406S-0631

PATIENT
  Age: 52 Year
  Sex: Female

DRUGS (6)
  1. OMNIPAQUE [Suspect]
     Indication: PULMONARY ARTERY DILATATION
     Dosage: DOSE NOT REPORTED
     Route: 042
     Dates: start: 20130404, end: 20130404
  2. OMNIPAQUE [Suspect]
     Indication: THERAPEUTIC PROCEDURE
  3. IOMERON [Suspect]
     Indication: INVESTIGATION
     Route: 042
     Dates: start: 20140404, end: 20140404
  4. IOMERON [Suspect]
     Indication: DIAGNOSTIC PROCEDURE
  5. GLYPRESSINE [Concomitant]
  6. SOLUMEDROL [Concomitant]

REACTIONS (2)
  - Generalised erythema [Recovered/Resolved]
  - Hypersensitivity [Recovered/Resolved]
